FAERS Safety Report 11724735 (Version 1)
Quarter: 2015Q4

REPORT INFORMATION
  Report Type: Spontaneous
  Country: US (occurrence: US)
  Receive Date: 20151111
  Receipt Date: 20151111
  Transmission Date: 20160304
  Serious: No
  Sender: FDA-Public Use
  Company Number: US-UCBSA-097278

PATIENT
  Sex: Female
  Weight: 88.4 kg

DRUGS (5)
  1. VIMPAT [Suspect]
     Active Substance: LACOSAMIDE
     Dosage: 150 MG 2 DAILY
  2. VIMPAT [Suspect]
     Active Substance: LACOSAMIDE
     Dosage: UNK, 100 MG 2 DAILY
  3. DEPAKOTE [Concomitant]
     Active Substance: DIVALPROEX SODIUM
     Indication: SEIZURE
     Dosage: 750 MG, 2X/DAY (BID)
     Dates: start: 1992
  4. VIMPAT [Suspect]
     Active Substance: LACOSAMIDE
     Indication: SEIZURE
     Dosage: 100 MG 2.5 DAILY, 150 MG IN THE AM AND 100 MG IN PM, EXPIRY DATE 30-JUN-2016
     Dates: start: 201302
  5. PRISTIQ EXTENDED RELEASE [Concomitant]
     Active Substance: DESVENLAFAXINE SUCCINATE
     Indication: DEPRESSION
     Dosage: 50 MG, ONCE DAILY (QD)
     Dates: start: 201302

REACTIONS (3)
  - Head titubation [Not Recovered/Not Resolved]
  - Alopecia [Recovered/Resolved]
  - Tremor [Not Recovered/Not Resolved]

NARRATIVE: CASE EVENT DATE: 2013
